FAERS Safety Report 6718678-6 (Version None)
Quarter: 2010Q2

REPORT INFORMATION
  Report Type: 
  Country: None (occurrence: None)
  Receive Date: 20100506
  Receipt Date: 20100422
  Transmission Date: 20101027
  Serious: Yes (Hospitalization, Other)
  Sender: FDA-Public Use
  Company Number: PT10-088-AE

PATIENT
  Sex: Female

DRUGS (1)
  1. HYDROXYZINE HCL ,              25 MG (AMNEAL) ) [Suspect]
     Dosage: 127 TABS, 1 TIME DOSE
     Dates: start: 20100301

REACTIONS (1)
  - OVERDOSE [None]
